FAERS Safety Report 5713854-3 (Version None)
Quarter: 2008Q2

REPORT INFORMATION
  Report Type: 
  Country: None (occurrence: None)
  Receive Date: 20080421
  Receipt Date: 20080404
  Transmission Date: 20081010
  Serious: Yes (Hospitalization)
  Sender: FDA-Public Use
  Company Number: 200804013

PATIENT
  Age: 35 Year
  Sex: Male

DRUGS (1)
  1. TESTIM [Suspect]
     Indication: HYPOGONADISM
     Dosage: 50 MG, DAILY, TRANSDERMAL
     Route: 062

REACTIONS (2)
  - CHEST PAIN [None]
  - PLEURAL EFFUSION [None]
